FAERS Safety Report 8462309-4 (Version None)
Quarter: 2012Q2

REPORT INFORMATION
  Report Type: 
  Country: None (occurrence: None)
  Receive Date: 20120625
  Receipt Date: 20120501
  Transmission Date: 20120825
  Serious: Yes (Death, Hospitalization, Other)
  Sender: FDA-Public Use
  Company Number: US-CELGENEUS-163-C5013-12020432

PATIENT
  Sex: Male
  Weight: 108.5 kg

DRUGS (76)
  1. THALIDOMIDE [Suspect]
     Dosage: 200 MILLIGRAM
     Route: 048
     Dates: start: 20101012, end: 20101129
  2. MELPHALAN HYDROCHLORIDE [Suspect]
     Indication: MULTIPLE MYELOMA
     Dosage: 24 MILLIGRAM
     Route: 065
     Dates: start: 20100824, end: 20100827
  3. MELPHALAN HYDROCHLORIDE [Suspect]
     Dosage: 24 MILLIGRAM
     Route: 065
     Dates: start: 20110104, end: 20110107
  4. PREDNISONE [Suspect]
     Dosage: 210 MILLIGRAM
     Route: 065
     Dates: start: 20110712, end: 20110715
  5. FUROSEMIDE [Concomitant]
     Dosage: 40 MILLIGRAM
     Route: 048
     Dates: start: 20101007, end: 20101116
  6. FUROSEMIDE [Concomitant]
     Dosage: 40 MILLIGRAM
     Route: 048
     Dates: start: 20101202, end: 20110413
  7. POTASSIUM CHLORIDE [Concomitant]
     Dosage: 20 MILLIEQUIVALENTS
     Route: 048
     Dates: start: 20101123, end: 20110713
  8. ZOMETA [Concomitant]
     Indication: BONE DISORDER
     Dosage: 4 MILLIGRAM
     Route: 041
     Dates: start: 20100824, end: 20101012
  9. COLCHICINE [Concomitant]
     Indication: GOUT
     Dosage: .6 MILLIGRAM
     Route: 048
     Dates: start: 20101030, end: 20101031
  10. COLCHICINE [Concomitant]
     Dosage: .6 MILLIGRAM
     Route: 048
     Dates: start: 20101207, end: 20101208
  11. DARBEPOETIN ALFA-ALBUMIN [Concomitant]
     Dosage: 300 MICROGRAM
     Route: 058
     Dates: start: 20101207
  12. MULTI-VITAMINS [Concomitant]
     Indication: VITAMIN SUPPLEMENTATION
     Dosage: 1 TABLET
     Route: 048
     Dates: start: 20100101
  13. LORAZEPAM [Concomitant]
     Indication: SEDATION
     Dosage: 1 MILLIGRAM
     Route: 041
     Dates: start: 20120113, end: 20120113
  14. MELPHALAN HYDROCHLORIDE [Suspect]
     Dosage: 24 MILLIGRAM
     Route: 065
     Dates: start: 20101005, end: 20101008
  15. MELPHALAN HYDROCHLORIDE [Suspect]
     Dosage: 4 MILLIGRAM
     Route: 065
     Dates: start: 20110830, end: 20110902
  16. GLYBURIDE [Concomitant]
     Dosage: 2.5 MILLIGRAM
     Route: 048
     Dates: start: 20080227, end: 20110101
  17. FUROSEMIDE [Concomitant]
     Dosage: 40 MILLIGRAM
     Route: 048
     Dates: start: 20060101, end: 20100929
  18. POTASSIUM CHLORIDE [Concomitant]
     Indication: PROPHYLAXIS
     Dosage: 20 MILLIEQUIVALENTS
     Route: 048
     Dates: start: 20060101, end: 20101122
  19. VICODIN [Concomitant]
     Indication: BACK PAIN
     Route: 048
     Dates: start: 20100907
  20. CALCIUM CARBONATE [Concomitant]
     Route: 048
     Dates: start: 20101027, end: 20101101
  21. COLCHICINE [Concomitant]
     Dosage: 4 MILLIGRAM
     Route: 048
     Dates: start: 20110512, end: 20110515
  22. GLIPIZIDE [Concomitant]
     Dosage: 10 MILLIGRAM
     Route: 048
     Dates: start: 20110527
  23. MEDROL [Concomitant]
     Indication: GOUT
     Dosage: 4 MILLIGRAM
     Route: 048
     Dates: start: 20110512, end: 20110515
  24. CIPROFLOXACIN HCL [Concomitant]
     Indication: INFECTION
     Dosage: 500 MILLIGRAM
     Route: 048
     Dates: start: 20111001, end: 20111005
  25. PREGABALIN [Concomitant]
     Dosage: 50 MILLIGRAM
     Route: 048
     Dates: start: 20111205, end: 20111215
  26. THALIDOMIDE [Suspect]
     Indication: MULTIPLE MYELOMA
     Dosage: 200 MILLIGRAM
     Route: 048
     Dates: start: 20100824, end: 20100906
  27. THALIDOMIDE [Suspect]
     Dosage: 100 MILLIGRAM
     Route: 048
     Dates: start: 20110503, end: 20110523
  28. MELPHALAN HYDROCHLORIDE [Suspect]
     Dosage: 6 MILLIGRAM
     Route: 065
     Dates: start: 20110531, end: 20110603
  29. PREDNISONE [Suspect]
     Indication: MULTIPLE MYELOMA
     Dosage: 230 MILLIGRAM
     Route: 065
     Dates: start: 20100824, end: 20100827
  30. PREDNISONE [Suspect]
     Dosage: 215 MILLIGRAM
     Route: 065
     Dates: start: 20110531, end: 20110603
  31. PREDNISONE [Suspect]
     Dosage: 215 MILLIGRAM
     Route: 065
     Dates: start: 20110830, end: 20110902
  32. METFORMIN HCL [Concomitant]
     Dosage: 1000 MILLIGRAM
     Route: 048
     Dates: start: 20060101, end: 20110526
  33. EQUATE STOOL SOFTENER [Concomitant]
     Indication: CONSTIPATION
     Dosage: 100 MILLIGRAM
     Route: 048
     Dates: start: 20100907
  34. GABAPENTIN [Concomitant]
     Dosage: 300 MILLIGRAM
     Route: 048
     Dates: start: 20110812, end: 20111009
  35. ACYCLOVIR [Concomitant]
     Indication: PROPHYLAXIS
     Dosage: 200 MILLIGRAM
     Route: 048
     Dates: start: 20110413
  36. THALIDOMIDE [Suspect]
     Dosage: 200 MILLIGRAM
     Route: 048
     Dates: start: 20101207, end: 20110502
  37. PREDNISONE [Suspect]
     Dosage: 225 MILLIGRAM
     Route: 065
     Dates: start: 20110104, end: 20110107
  38. GLYBURIDE [Concomitant]
     Dosage: 10 MILLIGRAM
     Route: 048
     Dates: start: 20080227, end: 20110101
  39. ZOMETA [Concomitant]
     Dosage: 3.3 MILLIGRAM
     Route: 041
     Dates: start: 20101228
  40. COLCHICINE [Concomitant]
     Dosage: .6 MILLIGRAM
     Route: 048
     Dates: start: 20110511, end: 20110511
  41. COLCHICINE [Concomitant]
     Dosage: .6 MILLIGRAM
     Route: 048
     Dates: start: 20110731, end: 20110801
  42. GABAPENTIN [Concomitant]
     Dosage: 100 MILLIGRAM
     Route: 048
     Dates: start: 20110725, end: 20110801
  43. NEUREMEDY [Concomitant]
     Indication: DIABETIC NEUROPATHY
     Dosage: 150 MILLIGRAM
     Route: 048
     Dates: start: 20111007, end: 20111204
  44. SODIUM CHLORIDE [Concomitant]
     Indication: FLUID REPLACEMENT
     Route: 041
  45. THALIDOMIDE [Suspect]
     Dosage: 200 MILLIGRAM
     Route: 048
     Dates: start: 20100914, end: 20100928
  46. THALIDOMIDE [Suspect]
     Dosage: 200 MILLIGRAM
     Route: 048
     Dates: start: 20101005, end: 20101010
  47. MELPHALAN HYDROCHLORIDE [Suspect]
     Dosage: 6 MILLIGRAM
     Route: 065
     Dates: start: 20110712, end: 20110715
  48. PREDNISONE [Suspect]
     Dosage: 215 MILLIGRAM
     Route: 065
     Dates: start: 20111018, end: 20111021
  49. FUROSEMIDE [Concomitant]
     Dosage: 80 MILLIGRAM
     Route: 048
     Dates: start: 20100930, end: 20101006
  50. WARFARIN SODIUM [Concomitant]
     Indication: PROPHYLAXIS
     Dosage: 7.5-10MG
     Route: 048
     Dates: start: 20070508, end: 20120202
  51. METOPROLOL TARTRATE [Concomitant]
     Indication: HYPERTENSION
     Dosage: 50 MILLIGRAM
     Route: 048
     Dates: start: 20060101, end: 20110207
  52. LISINOPRIL [Concomitant]
     Indication: HYPERTENSION
     Dosage: 10 MILLIGRAM
     Route: 048
     Dates: start: 20060101
  53. CALCIUM CARBONATE [Concomitant]
     Route: 048
     Dates: start: 20101102, end: 20101207
  54. ATIVAN [Concomitant]
     Indication: NAUSEA
     Dosage: .5 MILLIGRAM
     Route: 048
     Dates: start: 20101209, end: 20101214
  55. PREDNISONE [Suspect]
     Dosage: 60 MILLIGRAM
     Route: 048
     Dates: start: 20120306
  56. GABAPENTIN [Concomitant]
     Indication: DIABETIC NEUROPATHY
     Dosage: 100 MILLIGRAM
     Route: 048
     Dates: start: 20110722, end: 20110724
  57. THALIDOMIDE [Suspect]
     Dosage: 50 MILLIGRAM
     Route: 048
     Dates: start: 20110524, end: 20110620
  58. PREDNISONE [Suspect]
     Dosage: 230 MILLIGRAM
     Route: 065
     Dates: start: 20101005, end: 20101008
  59. PREDNISONE [Suspect]
     Dosage: 230 MILLIGRAM
     Route: 065
     Dates: start: 20101116, end: 20101119
  60. PREDNISONE [Suspect]
     Dosage: 225 MILLIGRAM
     Route: 065
     Dates: start: 20110412, end: 20110415
  61. FUROSEMIDE [Concomitant]
     Dosage: 20 MILLIGRAM
     Route: 041
     Dates: start: 20100908, end: 20100908
  62. FUROSEMIDE [Concomitant]
     Dosage: 40 MILLIGRAM/MILLILITERS
     Route: 048
     Dates: start: 20100930, end: 20101006
  63. MIRALAX [Concomitant]
     Indication: CONSTIPATION
     Route: 048
     Dates: start: 20100907
  64. GABAPENTIN [Concomitant]
     Dosage: 100 MILLIGRAM
     Route: 048
     Dates: start: 20110802, end: 20110811
  65. ACYCLOVIR [Concomitant]
  66. MELPHALAN HYDROCHLORIDE [Suspect]
     Dosage: 24 MILLIGRAM
     Route: 065
     Dates: start: 20101116, end: 20101119
  67. MELPHALAN HYDROCHLORIDE [Suspect]
     Dosage: 14 MILLIGRAM
     Route: 065
     Dates: start: 20110222, end: 20110225
  68. MELPHALAN HYDROCHLORIDE [Suspect]
     Dosage: 14 MILLIGRAM
     Route: 065
     Dates: start: 20110412, end: 20110415
  69. MELPHALAN HYDROCHLORIDE [Suspect]
     Dosage: 4 MILLIGRAM
     Route: 065
     Dates: start: 20111018, end: 20111021
  70. FUROSEMIDE [Concomitant]
     Dosage: 40 MILLIGRAM
     Route: 048
     Dates: start: 20101117, end: 20101129
  71. FUROSEMIDE [Concomitant]
     Dosage: 40 MILLIGRAM
     Route: 048
     Dates: start: 20101130, end: 20101201
  72. ACETAMINOPHEN [Concomitant]
     Dosage: 500 MILLIGRAM
     Route: 048
     Dates: start: 20100901
  73. CALCIUM CARBONATE [Concomitant]
     Dosage: 1250 MILLIGRAM
     Route: 048
     Dates: start: 20101208
  74. FISH OIL [Concomitant]
     Dosage: 1000 MILLIGRAM
     Route: 048
     Dates: start: 20100101
  75. PROCHLORPERAZINE MALEATE [Concomitant]
     Indication: NAUSEA
     Dosage: 10 MILLIGRAM
     Route: 048
     Dates: start: 20101207, end: 20101214
  76. INFLUENZA VACCINE [Concomitant]
     Dosage: .5 MILLILITER
     Route: 030
     Dates: start: 20111018, end: 20111018

REACTIONS (4)
  - THROMBOCYTOPENIA [None]
  - ANAEMIA [None]
  - MYELODYSPLASTIC SYNDROME [None]
  - EPISTAXIS [None]
